FAERS Safety Report 15271116 (Version 1)
Quarter: 2018Q3

REPORT INFORMATION
  Report Type: Report from Study
  Country: FR (occurrence: FR)
  Receive Date: 20180813
  Receipt Date: 20180813
  Transmission Date: 20181010
  Serious: Yes (Life-Threatening, Hospitalization)
  Sender: FDA-Public Use
  Company Number: FR-MYLANLABS-2018M1060258

PATIENT
  Age: 48 Year
  Sex: Female
  Weight: 87 kg

DRUGS (3)
  1. PALBOCICLIB [Suspect]
     Active Substance: PALBOCICLIB
     Indication: BREAST CANCER
     Dosage: 125 MG, CYCLE
     Route: 048
     Dates: start: 20180417, end: 20180727
  2. LETROZOLE. [Suspect]
     Active Substance: LETROZOLE
     Indication: BREAST CANCER
     Dosage: 2.5 MG, CYCLE
     Route: 048
     Dates: start: 20180417, end: 20180727
  3. DECAPEPTYL                         /00486501/ [Concomitant]
     Active Substance: GONADORELIN
     Indication: HORMONE REPLACEMENT THERAPY
     Dosage: UNK
     Route: 058
     Dates: start: 20180410

REACTIONS (2)
  - Pyelonephritis [Not Recovered/Not Resolved]
  - Nephrolithiasis [Unknown]

NARRATIVE: CASE EVENT DATE: 20180728
